FAERS Safety Report 5156087-4 (Version None)
Quarter: 2006Q4

REPORT INFORMATION
  Report Type: 
  Country: None (occurrence: None)
  Receive Date: 20061122
  Receipt Date: 20061114
  Transmission Date: 20070319
  Serious: Yes (Other)
  Sender: FDA-Public Use
  Company Number: PHNU2006DE03749

PATIENT
  Sex: Female

DRUGS (3)
  1. LEPONEX [Suspect]
     Dosage: UNK, UNK
     Route: 048
     Dates: start: 19880101, end: 20040101
  2. LEPONEX [Suspect]
     Dosage: 125 MG/DAY
     Route: 048
     Dates: start: 20040101
  3. SOLIAN [Concomitant]

REACTIONS (4)
  - CHRONIC OBSTRUCTIVE PULMONARY DISEASE [None]
  - DYSPNOEA EXERTIONAL [None]
  - EMPHYSEMA [None]
  - PULMONARY FIBROSIS [None]
